FAERS Safety Report 5883506-8 (Version None)
Quarter: 2008Q3

REPORT INFORMATION
  Report Type: 
  Country: None (occurrence: None)
  Receive Date: 20080910
  Receipt Date: 20080825
  Transmission Date: 20090109
  Serious: Yes (Hospitalization, Other)
  Sender: FDA-Public Use
  Company Number: 000#8#2008-00168

PATIENT
  Age: 80 Year
  Sex: Female

DRUGS (12)
  1. GLYCERYL TRINITRATE 0.4MG/H, PATCH (FORMULATION UNKNOWN) (GLYCERYL TRI [Suspect]
     Indication: CORONARY ARTERY DISEASE
     Dosage: 4 MG/H, TRANSDERMAL
     Route: 062
     Dates: start: 20060101, end: 20060901
  2. AMLODIPINE [Suspect]
     Indication: CORONARY ARTERY DISEASE
     Dosage: 2.5 MG  ORAL
     Route: 048
     Dates: start: 20060101, end: 20060901
  3. PROPAFENONE HCL [Suspect]
     Indication: ATRIAL FIBRILLATION
     Dosage: 900 MG   450 MG
     Dates: start: 19960101, end: 20060901
  4. PROPAFENONE HCL [Suspect]
     Indication: ATRIAL FIBRILLATION
     Dosage: 900 MG   450 MG
     Dates: start: 20060901
  5. CITALOPRAM HYDROBROMIDE [Suspect]
     Indication: ANXIETY
     Dosage: 10 MG , 20 MG
     Dates: start: 20060201, end: 20060301
  6. CITALOPRAM HYDROBROMIDE [Suspect]
     Indication: ANXIETY
     Dosage: 10 MG , 20 MG
     Dates: start: 20060301
  7. DIGOXIN [Concomitant]
  8. ISOSORSIDE DINITRATE (ISOSORBIDE DINITRATE) [Concomitant]
  9. SPIRONOLACTONE/HYDROCHLOROTHIAZIDE [Concomitant]
  10. SIMVASTATIN [Concomitant]
  11. ACETYLSALICYLIC ACID SRT [Concomitant]
  12. WARFARIN SODIUM [Concomitant]

REACTIONS (9)
  - ANAEMIA [None]
  - ATAXIA [None]
  - BLOOD CREATINE INCREASED [None]
  - BRADYCARDIA [None]
  - DELIRIUM [None]
  - DRUG INTERACTION [None]
  - FALL [None]
  - HYPOTENSION [None]
  - INTERNATIONAL NORMALISED RATIO INCREASED [None]
